FAERS Safety Report 8808887 (Version 1)
Quarter: 2012Q4

REPORT INFORMATION
  Report Type: Spontaneous
  Country: GB (occurrence: None)
  Receive Date: 20120920
  Receipt Date: 20120920
  Transmission Date: 20130627
  Serious: Yes (Hospitalization, Other)
  Sender: FDA-Public Use
  Company Number: 2012MA010979

PATIENT
  Weight: 2.88 kg

DRUGS (1)
  1. FEVERALL [Suspect]
     Indication: DRUG EXPOSURE IN UTERO
     Route: 064

REACTIONS (7)
  - Maternal drugs affecting foetus [None]
  - Drug level increased [None]
  - Hepatotoxicity [None]
  - International normalised ratio increased [None]
  - Hypoglycaemia neonatal [None]
  - Hepatic enzyme increased [None]
  - Jaundice neonatal [None]
